FAERS Safety Report 5723211-1 (Version None)
Quarter: 2008Q2

REPORT INFORMATION
  Report Type: 
  Country: None (occurrence: None)
  Receive Date: 20080428
  Receipt Date: 20080418
  Transmission Date: 20081010
  Serious: Yes (Other)
  Sender: FDA-Public Use
  Company Number: 163-20785-08020055

PATIENT
  Age: 62 Year
  Sex: Male

DRUGS (4)
  1. THALOMID [Suspect]
     Indication: MULTIPLE MYELOMA
     Dosage: 100 MG, 1 IN 1 D, ORAL
     Route: 048
     Dates: start: 20070625, end: 20070901
  2. NORCO [Concomitant]
  3. PROTONIX [Concomitant]
  4. DECADRON [Concomitant]

REACTIONS (1)
  - MENINGIOMA [None]
